FAERS Safety Report 4507671-X (Version None)
Quarter: 2004Q4

REPORT INFORMATION
  Report Type: 
  Country: None (occurrence: None)
  Receive Date: 20041118
  Receipt Date: 20041105
  Transmission Date: 20050328
  Serious: Yes (Hospitalization)
  Sender: FDA-Public Use
  Company Number: 2004065313

PATIENT
  Age: 37 Year
  Sex: Male

DRUGS (3)
  1. AZITHROMYCIN [Suspect]
     Indication: MYCOBACTERIUM AVIUM COMPLEX INFECTION
     Dosage: 1200 MG (1 IN 1 WK), ORAL
     Route: 048
     Dates: start: 20040826, end: 20040826
  2. BACTRIM [Suspect]
     Indication: PNEUMOCYSTIS CARINII PNEUMONIA
     Dosage: 2 TABLETS (1 IN 1 D), ORAL
     Route: 048
     Dates: start: 20040825
  3. CLARITHROMYCIN [Concomitant]

REACTIONS (6)
  - ANAPHYLACTIC SHOCK [None]
  - HYPOAESTHESIA ORAL [None]
  - LOSS OF CONSCIOUSNESS [None]
  - NAUSEA [None]
  - SWELLING FACE [None]
  - VOMITING [None]
